FAERS Safety Report 6898435-0 (Version None)
Quarter: 2010Q3

REPORT INFORMATION
  Report Type: 
  Country: None (occurrence: None)
  Receive Date: 20100802
  Receipt Date: 20071023
  Transmission Date: 20110219
  Serious: Yes (Other)
  Sender: FDA-Public Use
  Company Number: US-PFIZER INC-2007071453

PATIENT
  Sex: Male

DRUGS (3)
  1. LYRICA [Suspect]
     Indication: HERPES ZOSTER
     Route: 048
     Dates: start: 20070601
  2. ANTIHYPERTENSIVES [Concomitant]
     Indication: HYPERTENSION
     Route: 048
  3. CHOLESTEROL- AND TRIGLYCERIDE REDUCERS [Concomitant]
     Route: 048

REACTIONS (3)
  - DRUG INEFFECTIVE [None]
  - LOCALISED INFECTION [None]
  - NECK PAIN [None]
